FAERS Safety Report 19600981 (Version 1)
Quarter: 2021Q3

REPORT INFORMATION
  Report Type: Spontaneous
  Country: TR (occurrence: TR)
  Receive Date: 20210723
  Receipt Date: 20210723
  Transmission Date: 20211014
  Serious: Yes (Other)
  Sender: FDA-Public Use
  Company Number: TR-ACCORD-231759

PATIENT
  Age: 24 Year
  Sex: Female

DRUGS (1)
  1. SERTRALINE [Suspect]
     Active Substance: SERTRALINE HYDROCHLORIDE
     Indication: MIXED ANXIETY AND DEPRESSIVE DISORDER
     Dosage: REDUCED TO 25 MG/DAY, REDUCED GRADUALLY AND DISCONTINUED

REACTIONS (3)
  - Galactorrhoea [Recovered/Resolved]
  - Oromandibular dystonia [Recovered/Resolved]
  - Dystonia [Recovered/Resolved]
